FAERS Safety Report 15247790 (Version 1)
Quarter: 2018Q3

REPORT INFORMATION
  Report Type: Spontaneous
  Country: US (occurrence: US)
  Receive Date: 20180807
  Receipt Date: 20180807
  Transmission Date: 20181010
  Serious: No
  Sender: FDA-Public Use
  Company Number: US-ASTRAZENECA-2018SE94118

PATIENT

DRUGS (1)
  1. BRILINTA [Suspect]
     Active Substance: TICAGRELOR
     Indication: STENT PLACEMENT
     Route: 048

REACTIONS (6)
  - Weight increased [Unknown]
  - Anxiety [Unknown]
  - Headache [Unknown]
  - Product use issue [Unknown]
  - Dyspnoea [Unknown]
  - Off label use [Unknown]
